FAERS Safety Report 8544596 (Version 3)
Quarter: 2012Q4

REPORT INFORMATION
  Report Type: Report from Study
  Country: US (occurrence: US)
  Receive Date: 20120503
  Receipt Date: 20121019
  Transmission Date: 20130627
  Serious: Yes (Death, Hospitalization)
  Sender: FDA-Public Use
  Company Number: US-CELGENEUS-163-50794-12043219

PATIENT
  Age: 87 Year
  Sex: Female
  Weight: 60.1 kg

DRUGS (4)
  1. VIDAZA [Suspect]
     Indication: ACUTE MYELOID LEUKEMIA
     Dosage: 75 milligram/sq. meter
     Route: 058
     Dates: start: 20120306
  2. VIDAZA [Suspect]
     Dosage: 75 milligram/sq. meter
     Route: 058
     Dates: start: 20120321, end: 20120322
  3. GEMTUZUMAB OZOGAMICIN [Suspect]
     Indication: ACUTE MYELOID LEUKEMIA
     Dosage: 3 milligram/sq. meter
     Route: 041
     Dates: start: 20120306
  4. HYDROXYUREA [Concomitant]
     Indication: ACUTE MYELOID LEUKEMIA
     Dosage: 1500 Milligram
     Route: 048

REACTIONS (1)
  - Respiratory failure [Fatal]
